FAERS Safety Report 6793092-6 (Version None)
Quarter: 2010Q2

REPORT INFORMATION
  Report Type: 
  Country: None (occurrence: None)
  Receive Date: 20100624
  Receipt Date: 20090917
  Transmission Date: 20101027
  Serious: Yes (Other)
  Sender: FDA-Public Use
  Company Number: US-MYLANLABS-2009S1000050

PATIENT
  Age: 16 Year
  Sex: Male

DRUGS (11)
  1. CLOZAPINE [Suspect]
     Route: 048
     Dates: start: 20080612, end: 20090610
  2. CLOZAPINE [Suspect]
     Route: 048
     Dates: start: 20080601, end: 20090808
  3. CLOZAPINE [Suspect]
     Route: 048
     Dates: start: 20080612, end: 20090610
  4. CLOZAPINE [Suspect]
     Route: 048
     Dates: start: 20080601, end: 20090808
  5. PREVACID [Concomitant]
  6. DIVALPROEX SODIUM [Concomitant]
     Route: 048
  7. DESMOPRESSIN ACETATE [Concomitant]
     Route: 048
  8. LISINOPRIL [Concomitant]
     Route: 048
  9. BUSPIRONE HCL [Concomitant]
     Route: 048
  10. SERTRALINE HCL [Concomitant]
     Route: 048
  11. ADDERALL XR 10 [Concomitant]
     Route: 048

REACTIONS (1)
  - GRANULOCYTOPENIA [None]
